FAERS Safety Report 16794687 (Version 1)
Quarter: 2019Q3

REPORT INFORMATION
  Report Type: Spontaneous
  Country: FR (occurrence: FR)
  Receive Date: 20190911
  Receipt Date: 20190911
  Transmission Date: 20191005
  Serious: Yes (Hospitalization)
  Sender: FDA-Public Use
  Company Number: FR-ELI_LILLY_AND_COMPANY-FR201909000292

PATIENT
  Age: 71 Year
  Sex: Female
  Weight: 36 kg

DRUGS (3)
  1. YERVOY [Suspect]
     Active Substance: IPILIMUMAB
     Indication: CHEMOTHERAPY
     Dosage: 41 MG, EVERY 8 WEEK
     Route: 041
     Dates: start: 20190131, end: 20190424
  2. ALIMTA [Suspect]
     Active Substance: PEMETREXED DISODIUM
     Indication: CHEMOTHERAPY
     Dosage: 680 MG, CYCLICAL
     Route: 042
     Dates: start: 20190801, end: 20190801
  3. OPDIVO [Suspect]
     Active Substance: NIVOLUMAB
     Indication: CHEMOTHERAPY
     Dosage: 240 MG, EVERY 15 DAYS
     Route: 041
     Dates: start: 20190131, end: 20190522

REACTIONS (3)
  - Eosinophilia [Recovering/Resolving]
  - Pruritus [Recovering/Resolving]
  - Erysipelas [Recovering/Resolving]

NARRATIVE: CASE EVENT DATE: 20190815
